FAERS Safety Report 17797608 (Version 4)
Quarter: 2020Q2

REPORT INFORMATION
  Report Type: Spontaneous
  Country: DE (occurrence: DE)
  Receive Date: 20200518
  Receipt Date: 20200623
  Transmission Date: 20200714
  Serious: Yes (Other)
  Sender: FDA-Public Use
  Company Number: DE-MYLANLABS-2020M1048744

PATIENT
  Sex: Male

DRUGS (4)
  1. AMLODIPIN                          /00972401/ [Concomitant]
     Active Substance: AMLODIPINE BESYLATE
     Dosage: BEFORE 6 YR (DOSE 1/2) (1/2-0-0) (2.5)
     Route: 048
  2. VALSARTAN DURA 160 MG FILMTABLETTEN [Suspect]
     Active Substance: VALSARTAN
     Indication: HYPERTENSION
     Dosage: UNK
  3. BISOPROLOL [Concomitant]
     Active Substance: BISOPROLOL
     Dosage: BEFORE 6 YR, 5 MG, QD (0-0-1)
     Route: 048
  4. VALSARTAN DURA 160 MG FILMTABLETTEN [Suspect]
     Active Substance: VALSARTAN
     Dosage: UNK (DOSE 160) (1-0-0)
     Route: 048
     Dates: end: 202005

REACTIONS (4)
  - Therapeutic response decreased [Recovered/Resolved]
  - Product quality issue [Recovered/Resolved]
  - Arrhythmia [Recovered/Resolved]
  - Product substitution issue [Recovered/Resolved]
